FAERS Safety Report 13458238 (Version 6)
Quarter: 2025Q3

REPORT INFORMATION
  Report Type: Spontaneous
  Country: EU (occurrence: EU)
  Receive Date: 20170419
  Receipt Date: 20250925
  Transmission Date: 20251021
  Serious: Yes (Death, Other)
  Sender: MYLAN
  Company Number: EU-PFIZER INC-2017165605

PATIENT
  Age: 26 Year
  Sex: Male

DRUGS (40)
  1. PREGABALIN [Interacting]
     Active Substance: PREGABALIN
     Indication: Product used for unknown indication
  2. PREGABALIN [Interacting]
     Active Substance: PREGABALIN
  3. PREGABALIN [Interacting]
     Active Substance: PREGABALIN
     Route: 065
  4. PREGABALIN [Interacting]
     Active Substance: PREGABALIN
     Route: 065
  5. PREGABALIN [Interacting]
     Active Substance: PREGABALIN
  6. PREGABALIN [Interacting]
     Active Substance: PREGABALIN
  7. PREGABALIN [Interacting]
     Active Substance: PREGABALIN
     Route: 065
  8. PREGABALIN [Interacting]
     Active Substance: PREGABALIN
     Route: 065
  9. FENTANYL [Interacting]
     Active Substance: FENTANYL
     Indication: Product used for unknown indication
  10. FENTANYL [Interacting]
     Active Substance: FENTANYL
  11. FENTANYL [Interacting]
     Active Substance: FENTANYL
     Route: 065
  12. FENTANYL [Interacting]
     Active Substance: FENTANYL
     Route: 065
  13. FENTANYL [Interacting]
     Active Substance: FENTANYL
  14. FENTANYL [Interacting]
     Active Substance: FENTANYL
  15. FENTANYL [Interacting]
     Active Substance: FENTANYL
     Route: 065
  16. FENTANYL [Interacting]
     Active Substance: FENTANYL
     Route: 065
  17. MIRTAZAPINE [Interacting]
     Active Substance: MIRTAZAPINE
     Indication: Product used for unknown indication
  18. MIRTAZAPINE [Interacting]
     Active Substance: MIRTAZAPINE
  19. MIRTAZAPINE [Interacting]
     Active Substance: MIRTAZAPINE
     Route: 065
  20. MIRTAZAPINE [Interacting]
     Active Substance: MIRTAZAPINE
     Route: 065
  21. MIRTAZAPINE [Interacting]
     Active Substance: MIRTAZAPINE
  22. MIRTAZAPINE [Interacting]
     Active Substance: MIRTAZAPINE
  23. MIRTAZAPINE [Interacting]
     Active Substance: MIRTAZAPINE
     Route: 065
  24. MIRTAZAPINE [Interacting]
     Active Substance: MIRTAZAPINE
     Route: 065
  25. BUPRENORPHINE [Interacting]
     Active Substance: BUPRENORPHINE
     Indication: Product used for unknown indication
  26. BUPRENORPHINE [Interacting]
     Active Substance: BUPRENORPHINE
  27. BUPRENORPHINE [Interacting]
     Active Substance: BUPRENORPHINE
     Route: 065
  28. BUPRENORPHINE [Interacting]
     Active Substance: BUPRENORPHINE
     Route: 065
  29. BUPRENORPHINE [Interacting]
     Active Substance: BUPRENORPHINE
  30. BUPRENORPHINE [Interacting]
     Active Substance: BUPRENORPHINE
  31. BUPRENORPHINE [Interacting]
     Active Substance: BUPRENORPHINE
     Route: 065
  32. BUPRENORPHINE [Interacting]
     Active Substance: BUPRENORPHINE
     Route: 065
  33. CLONAZEPAM [Interacting]
     Active Substance: CLONAZEPAM
     Indication: Product used for unknown indication
  34. CLONAZEPAM [Interacting]
     Active Substance: CLONAZEPAM
  35. CLONAZEPAM [Interacting]
     Active Substance: CLONAZEPAM
     Route: 065
  36. CLONAZEPAM [Interacting]
     Active Substance: CLONAZEPAM
     Route: 065
  37. CLONAZEPAM [Interacting]
     Active Substance: CLONAZEPAM
  38. CLONAZEPAM [Interacting]
     Active Substance: CLONAZEPAM
  39. CLONAZEPAM [Interacting]
     Active Substance: CLONAZEPAM
     Route: 065
  40. CLONAZEPAM [Interacting]
     Active Substance: CLONAZEPAM
     Route: 065

REACTIONS (5)
  - Accidental overdose [Fatal]
  - Drug interaction [Fatal]
  - Toxicity to various agents [Fatal]
  - Pulmonary oedema [Fatal]
  - Brain oedema [Fatal]
